FAERS Safety Report 10442527 (Version 1)
Quarter: 2014Q3

REPORT INFORMATION
  Report Type: Spontaneous
  Country: JP (occurrence: JP)
  Receive Date: 20140909
  Receipt Date: 20140909
  Transmission Date: 20150326
  Serious: No
  Sender: FDA-Public Use
  Company Number: PHHY2013JP162479

PATIENT
  Age: 58 Year
  Sex: Female

DRUGS (3)
  1. TASIGNA [Suspect]
     Active Substance: NILOTINIB
     Indication: CHRONIC MYELOID LEUKAEMIA
     Dosage: 800 MG, DAILY
  2. DASATINIB [Suspect]
     Active Substance: DASATINIB
     Dosage: 100 MG, UNK
     Dates: start: 201005
  3. TASIGNA [Suspect]
     Active Substance: NILOTINIB
     Dosage: 800 MG, DAILY

REACTIONS (3)
  - Rash [Unknown]
  - Headache [Unknown]
  - Malaise [Unknown]
